FAERS Safety Report 9753244 (Version 2)
Quarter: 2013Q4

REPORT INFORMATION
  Report Type: Spontaneous
  Country: US (occurrence: US)
  Receive Date: 20131213
  Receipt Date: 20131213
  Transmission Date: 20140711
  Serious: No
  Sender: FDA-Public Use
  Company Number: US-GILEAD-2010-0026823

PATIENT
  Age: 53 Year
  Sex: Female
  Weight: 87.09 kg

DRUGS (8)
  1. LETAIRIS [Suspect]
     Indication: PULMONARY ARTERIAL HYPERTENSION
     Route: 048
     Dates: start: 20091013
  2. LETAIRIS [Suspect]
     Route: 048
     Dates: start: 201001
  3. LASIX [Concomitant]
  4. CRESTOR [Concomitant]
  5. VALIUM [Concomitant]
  6. AMBIEN [Concomitant]
  7. CYMBALTA [Concomitant]
  8. NEXIUM [Concomitant]

REACTIONS (2)
  - Hepatic enzyme increased [Recovered/Resolved]
  - Swelling [Recovering/Resolving]
